FAERS Safety Report 16075684 (Version 1)
Quarter: 2019Q1

REPORT INFORMATION
  Report Type: Spontaneous
  Country: US (occurrence: US)
  Receive Date: 20190315
  Receipt Date: 20190315
  Transmission Date: 20190418
  Serious: Yes (Other)
  Sender: FDA-Public Use
  Company Number: US-JNJFOC-20190310805

PATIENT
  Age: 48 Year
  Sex: Female

DRUGS (2)
  1. LOPERAMIDE [Suspect]
     Active Substance: LOPERAMIDE
     Indication: PRODUCT USED FOR UNKNOWN INDICATION
     Route: 065
  2. CLONAZEPAM. [Concomitant]
     Active Substance: CLONAZEPAM
     Indication: DEPRESSION
     Route: 065

REACTIONS (10)
  - Sinus bradycardia [Unknown]
  - Hypotension [Unknown]
  - Brugada syndrome [Unknown]
  - Overdose [Unknown]
  - Torsade de pointes [Unknown]
  - Abdominal distension [Unknown]
  - Blood creatinine increased [Unknown]
  - Electrocardiogram QT prolonged [Unknown]
  - Blood potassium increased [Unknown]
  - Somnolence [Unknown]
